FAERS Safety Report 6709384-2 (Version None)
Quarter: 2010Q2

REPORT INFORMATION
  Report Type: 
  Country: None (occurrence: None)
  Receive Date: 20100504
  Receipt Date: 20100424
  Transmission Date: 20101027
  Serious: Yes (Other)
  Sender: FDA-Public Use
  Company Number: PHHY2010BR26356

PATIENT
  Sex: Female

DRUGS (2)
  1. FORADIL [Suspect]
  2. FLUTICASONE PROPIONATE [Suspect]

REACTIONS (2)
  - PLEURAL DISORDER [None]
  - PNEUMONIA [None]
